FAERS Safety Report 13224164 (Version 2)
Quarter: 2017Q4

REPORT INFORMATION
  Report Type: Other
  Country: US (occurrence: US)
  Receive Date: 20170212
  Receipt Date: 20171128
  Transmission Date: 20180320
  Serious: Yes (Hospitalization, Other)
  Sender: FDA-Public Use
  Company Number: US-ACORDA-ACO_131856_2016

PATIENT
  Age: 66 Year
  Sex: Female

DRUGS (3)
  1. AMPYRA [Suspect]
     Active Substance: DALFAMPRIDINE
     Indication: MULTIPLE SCLEROSIS
     Dosage: 10 MG, BID (Q12H)
     Route: 048
     Dates: start: 201007
  2. CEFTRIAXONE. [Suspect]
     Active Substance: CEFTRIAXONE
     Indication: OSTEOMYELITIS
     Dosage: UNK
     Route: 065
  3. ANCEF [Suspect]
     Active Substance: CEFAZOLIN SODIUM
     Indication: OSTEOMYELITIS
     Dosage: UNK, BID
     Route: 065

REACTIONS (8)
  - Sepsis [Unknown]
  - Osteomyelitis [Unknown]
  - Wound infection staphylococcal [Unknown]
  - Urinary tract infection [Unknown]
  - Asthenia [Unknown]
  - Urinary tract infection staphylococcal [Unknown]
  - Liver function test increased [Unknown]
  - Decubitus ulcer [Unknown]

NARRATIVE: CASE EVENT DATE: 20161115
